FAERS Safety Report 4481109-3 (Version None)
Quarter: 2004Q4

REPORT INFORMATION
  Report Type: 
  Country: None (occurrence: None)
  Receive Date: 20041020
  Receipt Date: 20040806
  Transmission Date: 20050328
  Serious: Yes (Life-Threatening, Other)
  Sender: FDA-Public Use
  Company Number: 2004S1002349

PATIENT
  Age: 61 Year
  Sex: Female
  Weight: 72.5755 kg

DRUGS (7)
  1. TAMOXIFEN CITRATE [Suspect]
     Indication: BREAST CANCER IN SITU
     Dosage: 20 MG QD, ORAL
     Route: 048
     Dates: start: 20040712, end: 20040803
  2. TAMOXIFEN CITRATE [Suspect]
     Indication: PROPHYLAXIS
     Dosage: 20 MG QD, ORAL
     Route: 048
     Dates: start: 20040712, end: 20040803
  3. ATORVASTATIN CALCIUM [Concomitant]
  4. LEVOTHYROXINE SODIUM [Concomitant]
  5. TRIAMTERENE AND HYDROCHLOROTHIAZIDE [Concomitant]
  6. ENALAPRIL MALEATE [Concomitant]
  7. ALENDRONATE SODIUM [Concomitant]

REACTIONS (3)
  - ANXIETY [None]
  - DEPRESSION [None]
  - SUICIDAL IDEATION [None]
